FAERS Safety Report 6846974-0 (Version None)
Quarter: 2010Q3

REPORT INFORMATION
  Report Type: 
  Country: None (occurrence: None)
  Receive Date: 20100713
  Receipt Date: 20100705
  Transmission Date: 20110219
  Serious: Yes (Death)
  Sender: FDA-Public Use
  Company Number: B0664727A

PATIENT
  Sex: Male

DRUGS (4)
  1. DOCETAXEL (FORMULATION UNKNOWN) (GENERIC) (DOCETAXEL) [Suspect]
     Indication: PROSTATE CANCER
     Dosage: 70 MG/M2/ PER DAY / INTRAVENOUS INFUS
  2. HYDROCORTISONE [Suspect]
     Indication: PROSTATE CANCER
     Dosage: CONTINUOUS
  3. ESTRAMUSTINE NA PHOSPHATE (FORMULATION UNKNOWN (ESTRAMUSTINE NA PHOSPH [Suspect]
     Indication: PROSTATE CANCER
     Dosage: 560 MG/ PER DAY
  4. DEXAMETHASONE [Suspect]
     Indication: PROSTATE CANCER
     Dosage: 8 MG / PER DAY

REACTIONS (2)
  - DRUG TOXICITY [None]
  - MYOCARDIAL INFARCTION [None]
